FAERS Safety Report 19630147 (Version 3)
Quarter: 2021Q4

REPORT INFORMATION
  Report Type: Spontaneous
  Country: CA (occurrence: CA)
  Receive Date: 20210728
  Receipt Date: 20211005
  Transmission Date: 20220303
  Serious: Yes (Other)
  Sender: FDA-Public Use
  Company Number: CA-PFIZER INC-2021002557

PATIENT
  Age: 48 Year
  Sex: Female
  Weight: 106 kg

DRUGS (17)
  1. RUXIENCE [Suspect]
     Active Substance: RITUXIMAB-PVVR
     Indication: Rheumatoid arthritis
     Dosage: 1000 MG AT 0, 2 WEEK AND THEN 24 WEEKS BETWEEN COURSES
     Route: 042
     Dates: start: 20201218, end: 20210203
  2. RUXIENCE [Suspect]
     Active Substance: RITUXIMAB-PVVR
     Dosage: 1000 MG  AT Q 0 AND 2 WEEK
     Route: 042
     Dates: start: 20201218, end: 20210204
  3. RUXIENCE [Suspect]
     Active Substance: RITUXIMAB-PVVR
     Dosage: 1000 MG AT 0, 2 WEEK AND THEN 24 WEEKS BETWEEN COURSES
     Route: 042
     Dates: start: 20210203
  4. RUXIENCE [Suspect]
     Active Substance: RITUXIMAB-PVVR
     Dosage: 1000 MG AT 0, 2 WEEK AND THEN 24 WEEKS BETWEEN COURSES
     Route: 042
     Dates: start: 20210812
  5. RUXIENCE [Suspect]
     Active Substance: RITUXIMAB-PVVR
     Dosage: 1000 MG AT 0, 2 WEEK AND THEN 24 WEEKS BETWEEN COURSES
     Route: 042
     Dates: start: 20210922
  6. PAPAIN [Concomitant]
     Active Substance: PAPAIN
     Dosage: 1 DF
     Dates: start: 202011
  7. CANDESARTAN [Concomitant]
     Active Substance: CANDESARTAN
     Dosage: 8 MG, 1X/DAY
  8. CANDESARTAN [Concomitant]
     Active Substance: CANDESARTAN
     Dosage: 1 DF (UNKNOWN DOSE)
  9. METHOTREXATE [Concomitant]
     Active Substance: METHOTREXATE
     Dosage: 25 MG, WEEKLY
  10. OMEPRAZOLE [Concomitant]
     Active Substance: OMEPRAZOLE
     Dosage: 20 MG, 2X/DAY
  11. OMEPRAZOLE [Concomitant]
     Active Substance: OMEPRAZOLE
     Dosage: 1 DF UNKNOWN DOSE
  12. ORAJEL [Concomitant]
     Active Substance: ALLANTOIN\BENZOCAINE\CAMPHOR (NATURAL)\DIMETHICONE\MENTHOL
     Dosage: UNK, AS NEEDED
     Route: 065
     Dates: start: 202011
  13. ORAJEL [Concomitant]
     Active Substance: ALLANTOIN\BENZOCAINE\CAMPHOR (NATURAL)\DIMETHICONE\MENTHOL
     Dosage: 1 DF UNKNOWN DOSE
     Dates: start: 202011
  14. PREDNISONE [Concomitant]
     Active Substance: PREDNISONE
     Dosage: UNK, DAILY
     Route: 065
  15. PREDNISONE [Concomitant]
     Active Substance: PREDNISONE
     Dosage: 15 MG
  16. PREDNISONE [Concomitant]
     Active Substance: PREDNISONE
     Dosage: 10 MG, DAILY
     Route: 065
  17. WELLBUTRIN [Concomitant]
     Active Substance: BUPROPION HYDROCHLORIDE
     Dosage: 150 MG, 2X/DAY
     Route: 065

REACTIONS (7)
  - Internal haemorrhage [Unknown]
  - Haemoglobin decreased [Unknown]
  - Inappropriate schedule of product administration [Unknown]
  - Toothache [Not Recovered/Not Resolved]
  - Insomnia [Unknown]
  - Tooth disorder [Unknown]
  - Nausea [Unknown]

NARRATIVE: CASE EVENT DATE: 20210101
